FAERS Safety Report 16804183 (Version 1)
Quarter: 2019Q4

REPORT INFORMATION
  Report Type: Spontaneous
  Country: US (occurrence: US)
  Receive Date: 20190912
  Receipt Date: 20190912
  Transmission Date: 20200122
  Serious: Yes (Other)
  Sender: FDA-Public Use
  Company Number: None

PATIENT
  Age: 35 Year
  Sex: Female
  Weight: 76.5 kg

DRUGS (2)
  1. DOTAREM [Suspect]
     Active Substance: GADOTERATE MEGLUMINE
     Indication: MAGNETIC RESONANCE IMAGING
     Route: 042
     Dates: start: 20190828, end: 20190828
  2. VALIUM [Concomitant]
     Active Substance: DIAZEPAM

REACTIONS (27)
  - Blood urine [None]
  - Mental impairment [None]
  - Pain of skin [None]
  - Arthralgia [None]
  - Migraine [None]
  - Head discomfort [None]
  - Insomnia [None]
  - Musculoskeletal pain [None]
  - Mobility decreased [None]
  - Presyncope [None]
  - Dysuria [None]
  - Fatigue [None]
  - Pain [None]
  - Retching [None]
  - Coccydynia [None]
  - Spinal pain [None]
  - Chills [None]
  - Epistaxis [None]
  - Bone pain [None]
  - Nausea [None]
  - Groin pain [None]
  - Tremor [None]
  - Alopecia [None]
  - Pain in extremity [None]
  - Metal poisoning [None]
  - Gait disturbance [None]
  - Tinnitus [None]

NARRATIVE: CASE EVENT DATE: 20190828
